FAERS Safety Report 25937970 (Version 3)
Quarter: 2025Q4

REPORT INFORMATION
  Report Type: Spontaneous
  Country: US (occurrence: US)
  Receive Date: 20251018
  Receipt Date: 20251121
  Transmission Date: 20260117
  Serious: No
  Sender: TRAVERE THERAPEUTICS
  Company Number: US-TRAVERE-2025TVT01580

PATIENT
  Age: 66 Year
  Sex: Male

DRUGS (1)
  1. FILSPARI [Suspect]
     Active Substance: SPARSENTAN
     Indication: IgA nephropathy
     Route: 048
     Dates: start: 20250805

REACTIONS (9)
  - Abdominal pain upper [None]
  - Hypotension [Unknown]
  - Decreased appetite [None]
  - Fatigue [None]
  - Hypersomnia [Unknown]
  - Loss of personal independence in daily activities [Unknown]
  - Dyspepsia [Unknown]
  - Gastrooesophageal reflux disease [Unknown]
  - Product administration error [Unknown]

NARRATIVE: CASE EVENT DATE: 20250805
